FAERS Safety Report 11982404 (Version 1)
Quarter: 2016Q1

REPORT INFORMATION
  Report Type: Spontaneous
  Country: US (occurrence: US)
  Receive Date: 20160201
  Receipt Date: 20160201
  Transmission Date: 20160526
  Serious: No
  Sender: FDA-Public Use
  Company Number: US-ASTRAZENECA-2016SE07442

PATIENT
  Sex: Female

DRUGS (2)
  1. BYDUREON [Suspect]
     Active Substance: EXENATIDE
     Indication: METABOLIC DISORDER
     Dosage: 4 COUNT
     Route: 058
     Dates: start: 201512
  2. BYDUREON [Suspect]
     Active Substance: EXENATIDE
     Indication: METABOLIC DISORDER
     Route: 058
     Dates: start: 201512

REACTIONS (6)
  - Product use issue [Not Recovered/Not Resolved]
  - Injection site pain [Not Recovered/Not Resolved]
  - Product quality issue [Unknown]
  - Injection site nerve damage [Not Recovered/Not Resolved]
  - Off label use [Not Recovered/Not Resolved]
  - Injection site bruising [Recovered/Resolved]
